FAERS Safety Report 22351531 (Version 1)
Quarter: 2023Q2

REPORT INFORMATION
  Report Type: Spontaneous
  Country: US (occurrence: None)
  Receive Date: 20230522
  Receipt Date: 20230522
  Transmission Date: 20230722
  Serious: Yes (Hospitalization)
  Sender: FDA-Public Use
  Company Number: None

PATIENT
  Age: 87 Year
  Sex: Male

DRUGS (1)
  1. DROXIDOPA [Suspect]
     Active Substance: DROXIDOPA
     Indication: Orthostatic hypotension
     Dosage: OTHER QUANTITY : 600MG, 600MG, 300M;?FREQUENCY : 3 TIMES A DAY;?
     Route: 048

REACTIONS (3)
  - Loss of consciousness [None]
  - Dehydration [None]
  - Orthostatic hypotension [None]

NARRATIVE: CASE EVENT DATE: 20230501
